FAERS Safety Report 17059367 (Version 1)
Quarter: 2019Q4

REPORT INFORMATION
  Report Type: Spontaneous
  Country: US (occurrence: US)
  Receive Date: 20191121
  Receipt Date: 20191121
  Transmission Date: 20200122
  Serious: Yes (Death)
  Sender: FDA-Public Use
  Company Number: US-PERRIGO-19US013893

PATIENT
  Age: 52 Year
  Sex: Male

DRUGS (2)
  1. CODEINE [Suspect]
     Active Substance: CODEINE
     Indication: PRODUCT USED FOR UNKNOWN INDICATION
     Dosage: UNK
     Route: 065
  2. ACETAMINOPHEN. [Suspect]
     Active Substance: ACETAMINOPHEN
     Indication: PRODUCT USED FOR UNKNOWN INDICATION
     Dosage: UNK
     Route: 065

REACTIONS (8)
  - Metabolic acidosis [Fatal]
  - Hypoglycaemia [Fatal]
  - Pneumonia aspiration [Fatal]
  - Acute kidney injury [Fatal]
  - Depressed level of consciousness [Fatal]
  - Hepatotoxicity [Fatal]
  - Toxicity to various agents [Fatal]
  - Hypotension [Fatal]
